FAERS Safety Report 7769149-X (Version None)
Quarter: 2011Q3

REPORT INFORMATION
  Report Type: 
  Country: None (occurrence: None)
  Receive Date: 20110922
  Receipt Date: 20101206
  Transmission Date: 20111222
  Serious: No
  Sender: FDA-Public Use
  Company Number: US-ASTRAZENECA-2010SE58034

PATIENT
  Age: 601 Month
  Sex: Female
  Weight: 104.3 kg

DRUGS (2)
  1. SEROQUEL XR [Suspect]
     Indication: NEUROPATHY PERIPHERAL
     Route: 048
     Dates: start: 20100601, end: 20100801
  2. SEROQUEL XR [Suspect]
     Indication: INSOMNIA
     Route: 048
     Dates: start: 20100601, end: 20100801

REACTIONS (2)
  - INSOMNIA [None]
  - DRUG DOSE OMISSION [None]
